FAERS Safety Report 7141193-5 (Version None)
Quarter: 2010Q4

REPORT INFORMATION
  Report Type: 
  Country: None (occurrence: None)
  Receive Date: 20101207
  Receipt Date: 20101129
  Transmission Date: 20110411
  Serious: Yes (Other)
  Sender: FDA-Public Use
  Company Number: US-JNJFOC-20100704843

PATIENT
  Sex: Male

DRUGS (14)
  1. LEVAQUIN [Suspect]
     Indication: SURGERY
     Route: 048
  2. LEVAQUIN [Suspect]
     Indication: ABDOMINAL INFECTION
     Route: 042
  3. VANCOMYCIN [Concomitant]
     Indication: BACTERIAL INFECTION
     Route: 065
  4. ERTAPENEM [Concomitant]
     Indication: ILL-DEFINED DISORDER
     Route: 042
  5. FAMOTIDINE [Concomitant]
     Indication: ILL-DEFINED DISORDER
     Route: 042
  6. HEPARIN [Concomitant]
     Indication: ILL-DEFINED DISORDER
     Route: 058
  7. METRONIDAZOLE [Concomitant]
     Indication: ILL-DEFINED DISORDER
     Route: 042
  8. OCTREOTIDE ACETATE [Concomitant]
     Indication: ILL-DEFINED DISORDER
     Route: 058
  9. LORTAB [Concomitant]
     Indication: ILL-DEFINED DISORDER
     Route: 048
  10. HYDROMORPHONE HCL [Concomitant]
     Indication: ILL-DEFINED DISORDER
     Route: 042
  11. NOVOLIN R [Concomitant]
     Indication: ILL-DEFINED DISORDER
     Route: 058
  12. MORPHINE [Concomitant]
     Indication: ILL-DEFINED DISORDER
     Route: 042
  13. ZOFRAN [Concomitant]
     Indication: ILL-DEFINED DISORDER
     Route: 042
  14. HYDROCHLORTHIAZID [Concomitant]
     Indication: ILL-DEFINED DISORDER
     Route: 048

REACTIONS (4)
  - ARTHRITIS [None]
  - MUSCLE RUPTURE [None]
  - ROTATOR CUFF SYNDROME [None]
  - TENDON RUPTURE [None]
